FAERS Safety Report 13694320 (Version 1)
Quarter: 2017Q2

REPORT INFORMATION
  Report Type: Spontaneous
  Country: FR (occurrence: FR)
  Receive Date: 20170627
  Receipt Date: 20170627
  Transmission Date: 20170830
  Serious: Yes (Other)
  Sender: FDA-Public Use
  Company Number: FR-BAYER-2017-121451

PATIENT
  Sex: Female

DRUGS (1)
  1. MIRENA [Suspect]
     Active Substance: LEVONORGESTREL
     Indication: CONTRACEPTION
     Dosage: 20 MCG/24HR, CONT
     Route: 015
     Dates: start: 2014

REACTIONS (20)
  - Anxiety [Unknown]
  - Cyst [Unknown]
  - Amnesia [Unknown]
  - Sleep disorder [Unknown]
  - Fatigue [Unknown]
  - Irritability [Unknown]
  - Tinnitus [Unknown]
  - Vision blurred [Unknown]
  - Pain in extremity [Unknown]
  - Vertigo [Unknown]
  - Arthropathy [Not Recovered/Not Resolved]
  - Tooth fracture [Unknown]
  - Limb discomfort [Unknown]
  - Constipation [Unknown]
  - Fibroma [Unknown]
  - Migraine [Unknown]
  - Back pain [Unknown]
  - Depression [Unknown]
  - Abdominal pain [Unknown]
  - Aphasia [Unknown]

NARRATIVE: CASE EVENT DATE: 20140423
